FAERS Safety Report 22630267 (Version 1)
Quarter: 2023Q2

REPORT INFORMATION
  Report Type: Spontaneous
  Country: US (occurrence: None)
  Receive Date: 20230619
  Receipt Date: 20230619
  Transmission Date: 20230722
  Serious: Yes (Hospitalization)
  Sender: FDA-Public Use
  Company Number: None

PATIENT
  Sex: Female

DRUGS (1)
  1. TERIPARATIDE [Suspect]
     Active Substance: TERIPARATIDE
     Indication: Osteoporosis
     Dosage: OTHER STRENGTH : 20MCG/ML;?OTHER QUANTITY : 2MCG;?FREQUENCY : DAILY;?
     Route: 058
     Dates: start: 20220113

REACTIONS (5)
  - Blood sodium decreased [None]
  - Asthenia [None]
  - Dizziness [None]
  - Feeling abnormal [None]
  - Chest pain [None]
